FAERS Safety Report 12503118 (Version 1)
Quarter: 2016Q2

REPORT INFORMATION
  Report Type: Spontaneous
  Country: US (occurrence: None)
  Receive Date: 20160627
  Receipt Date: 20160627
  Transmission Date: 20160815
  Serious: No
  Sender: FDA-Public Use
  Company Number: None

PATIENT
  Age: 12 Year
  Sex: Male
  Weight: 43.09 kg

DRUGS (1)
  1. POLYMYXIN B SULFATE-TRIMETHOPRIM, 10 MG BAUSCH = LOMB [Suspect]
     Active Substance: POLYMYXIN B SULFATE\TRIMETHOPRIM SULFATE
     Indication: CONJUNCTIVITIS
     Route: 031
     Dates: start: 20160624, end: 20160624

REACTIONS (3)
  - Eyelid oedema [None]
  - Swelling face [None]
  - Ocular hyperaemia [None]

NARRATIVE: CASE EVENT DATE: 20160624
